FAERS Safety Report 13112848 (Version 1)
Quarter: 2017Q1

REPORT INFORMATION
  Report Type: Spontaneous
  Country: JP (occurrence: JP)
  Receive Date: 20170113
  Receipt Date: 20170113
  Transmission Date: 20170428
  Serious: Yes (Hospitalization, Other)
  Sender: FDA-Public Use
  Company Number: PHHY2016JP137040

PATIENT
  Age: 85 Year
  Sex: Female

DRUGS (6)
  1. RIVASTACH [Suspect]
     Active Substance: RIVASTIGMINE
     Indication: DEMENTIA ALZHEIMER^S TYPE
     Dosage: 9 MG, QD
     Route: 062
     Dates: start: 20160222
  2. BAYASPIRIN [Concomitant]
     Active Substance: ASPIRIN
     Indication: PRODUCT USED FOR UNKNOWN INDICATION
     Route: 065
  3. CRESTOR [Concomitant]
     Active Substance: ROSUVASTATIN CALCIUM
     Indication: PRODUCT USED FOR UNKNOWN INDICATION
     Route: 065
  4. FURSULTIAMINE [Concomitant]
     Active Substance: FURSULTIAMINE
     Indication: PRODUCT USED FOR UNKNOWN INDICATION
     Route: 005
  5. LOSARTAN K [Concomitant]
     Active Substance: LOSARTAN POTASSIUM
     Indication: PRODUCT USED FOR UNKNOWN INDICATION
     Route: 065
  6. SENNOSIDE [Concomitant]
     Active Substance: SENNOSIDES
     Indication: PRODUCT USED FOR UNKNOWN INDICATION
     Route: 065

REACTIONS (3)
  - Gait disturbance [Recovered/Resolved]
  - Decreased activity [Recovered/Resolved]
  - Parkinsonism [Recovered/Resolved]

NARRATIVE: CASE EVENT DATE: 20160407
